FAERS Safety Report 17407890 (Version 1)
Quarter: 2020Q1

REPORT INFORMATION
  Report Type: Report from Study
  Country: US (occurrence: US)
  Receive Date: 20200212
  Receipt Date: 20200212
  Transmission Date: 20200409
  Serious: No
  Sender: FDA-Public Use
  Company Number: NVSC2020US032034

PATIENT
  Sex: Female

DRUGS (1)
  1. ENTRESTO [Suspect]
     Active Substance: SACUBITRIL\VALSARTAN
     Indication: PRODUCT USED FOR UNKNOWN INDICATION
     Dosage: UNK(SACUBITRIL 24MG,VALSARTAN26 MG) 1 1/2 PILL A DAY
     Route: 065

REACTIONS (2)
  - Underdose [Unknown]
  - Wrong technique in product usage process [Unknown]
